FAERS Safety Report 4330631-9 (Version None)
Quarter: 2004Q1

REPORT INFORMATION
  Report Type: 
  Country: None (occurrence: None)
  Receive Date: 20040329
  Receipt Date: 20040316
  Transmission Date: 20041129
  Serious: Yes (Hospitalization)
  Sender: FDA-Public Use
  Company Number: 2004IM000462

PATIENT
  Age: 63 Year
  Sex: Female

DRUGS (7)
  1. ACTIMMUNE [Suspect]
     Indication: INTERSTITIAL LUNG DISEASE
     Dosage: 100 UG; BIW; SUBCUTANEOUS
     Route: 058
  2. COMBIVENT [Concomitant]
  3. LOTENSIN [Concomitant]
  4. PREMARIN [Concomitant]
  5. ACIPHEX [Concomitant]
  6. ADVAIR 500 [Concomitant]
  7. RESTORIL [Concomitant]

REACTIONS (2)
  - INTERSTITIAL LUNG DISEASE [None]
  - RENAL FAILURE [None]
